FAERS Safety Report 6279997-3 (Version None)
Quarter: 2009Q3

REPORT INFORMATION
  Report Type: 
  Country: None (occurrence: None)
  Receive Date: 20090723
  Receipt Date: 20090717
  Transmission Date: 20100115
  Serious: Yes (Death)
  Sender: FDA-Public Use
  Company Number: US-NAPPMUNDI-USA-2009-0039017

PATIENT
  Sex: Male

DRUGS (1)
  1. OXYCONTIN [Suspect]
     Indication: CANCER PAIN
     Dosage: 80 MG, Q12H

REACTIONS (2)
  - LIP AND/OR ORAL CAVITY CANCER [None]
  - MALIGNANT NEOPLASM PROGRESSION [None]
